FAERS Safety Report 14842757 (Version 2)
Quarter: 2018Q2

REPORT INFORMATION
  Report Type: Spontaneous
  Country: FR (occurrence: FR)
  Receive Date: 20180503
  Receipt Date: 20180523
  Transmission Date: 20180711
  Serious: Yes (Other)
  Sender: FDA-Public Use
  Company Number: PHHY2018FR076885

PATIENT
  Age: 70 Year
  Sex: Female
  Weight: 59 kg

DRUGS (14)
  1. TOPALGIC [Concomitant]
     Indication: PRODUCT USED FOR UNKNOWN INDICATION
     Dosage: 1-3 TABLETS
     Route: 065
  2. PANTOPRAZOLE [Concomitant]
     Active Substance: PANTOPRAZOLE
     Indication: PRODUCT USED FOR UNKNOWN INDICATION
     Dosage: 20 MG, UNK
     Route: 065
  3. FLUCONAZOLE. [Suspect]
     Active Substance: FLUCONAZOLE
     Indication: ORAL FUNGAL INFECTION
     Dosage: 50 MG, UNK
     Route: 048
  4. SULFARLEM [Concomitant]
     Active Substance: ANETHOLTRITHION
     Indication: PRODUCT USED FOR UNKNOWN INDICATION
     Dosage: 3 DF, QD, MORNING, NOON AND EVENING
     Route: 065
  5. TRAMADOL. [Concomitant]
     Active Substance: TRAMADOL
     Indication: PRODUCT USED FOR UNKNOWN INDICATION
     Dosage: UNK
     Route: 065
  6. IXPRIM [Concomitant]
     Active Substance: ACETAMINOPHEN\TRAMADOL HYDROCHLORIDE
     Indication: PRODUCT USED FOR UNKNOWN INDICATION
     Dosage: 3 DF, QD (MORNING, NOON AND EVENING)
     Route: 065
  7. IMOVANE [Concomitant]
     Active Substance: ZOPICLONE
     Indication: PRODUCT USED FOR UNKNOWN INDICATION
     Dosage: 1 OT, QD
     Route: 065
  8. FUNGIZONE [Suspect]
     Active Substance: AMPHOTERICIN B
     Indication: PRODUCT USED FOR UNKNOWN INDICATION
     Dosage: UNK
     Route: 065
  9. OFLOXACIN. [Suspect]
     Active Substance: OFLOXACIN
     Indication: ABSCESS
     Dosage: 400 MG, QD (MORNING, EVENING)
     Route: 048
     Dates: start: 20170921, end: 20170926
  10. TAHOR [Concomitant]
     Active Substance: ATORVASTATIN CALCIUM
     Indication: PRODUCT USED FOR UNKNOWN INDICATION
     Dosage: 10 MG, UNK
     Route: 065
  11. FORLAX [Concomitant]
     Active Substance: POLYETHYLENE GLYCOL 4000
     Indication: PRODUCT USED FOR UNKNOWN INDICATION
     Dosage: 1 DF, QD MORNING
     Route: 065
  12. LEXOMIL [Concomitant]
     Active Substance: BROMAZEPAM
     Indication: PRODUCT USED FOR UNKNOWN INDICATION
     Dosage: 1 DF, UNK, 1 EVENING FROM TIME TO TIME
     Route: 065
  13. OGAST [Concomitant]
     Active Substance: LANSOPRAZOLE
     Indication: PRODUCT USED FOR UNKNOWN INDICATION
     Dosage: 1 OT, QD (EVENING)
     Route: 065
  14. SERESTA [Concomitant]
     Active Substance: OXAZEPAM
     Indication: PRODUCT USED FOR UNKNOWN INDICATION
     Dosage: 5 MG, UNK
     Route: 065

REACTIONS (16)
  - Swelling face [Unknown]
  - Dysphagia [Not Recovered/Not Resolved]
  - Tongue discolouration [Unknown]
  - Dehydration [Not Recovered/Not Resolved]
  - Swollen tongue [Unknown]
  - Tongue ulceration [Not Recovered/Not Resolved]
  - Leukoplakia oral [Recovering/Resolving]
  - Paraesthesia oral [Unknown]
  - Burn oesophageal [Not Recovered/Not Resolved]
  - Feeding disorder [Not Recovered/Not Resolved]
  - Aptyalism [Not Recovered/Not Resolved]
  - Ageusia [Unknown]
  - Gastrointestinal disorder [Unknown]
  - Pain [Not Recovered/Not Resolved]
  - Dysgeusia [Not Recovered/Not Resolved]
  - Tongue disorder [Unknown]

NARRATIVE: CASE EVENT DATE: 20170922
